FAERS Safety Report 7997066-9 (Version None)
Quarter: 2011Q4

REPORT INFORMATION
  Report Type: 
  Country: None (occurrence: None)
  Receive Date: 20111221
  Receipt Date: 20111214
  Transmission Date: 20120403
  Serious: No
  Sender: FDA-Public Use
  Company Number: US-B.I. PHARMACEUTICALS,INC./RIDGEFIELD-2011-BP-28113BP

PATIENT
  Age: 75 Year
  Sex: Male

DRUGS (4)
  1. MULTAQ [Suspect]
     Indication: ATRIAL FIBRILLATION
     Dosage: 800 MG
     Route: 048
     Dates: start: 20110901
  2. DIOVAN [Suspect]
  3. PRADAXA [Suspect]
     Dosage: 300 MG
  4. CRESTOR [Suspect]

REACTIONS (2)
  - FATIGUE [None]
  - POLLAKIURIA [None]
